FAERS Safety Report 24025639 (Version 2)
Quarter: 2024Q2

REPORT INFORMATION
  Report Type: Report from Study
  Country: CN (occurrence: CN)
  Receive Date: 20240628
  Receipt Date: 20240628
  Transmission Date: 20240716
  Serious: No
  Sender: FDA-Public Use
  Company Number: CN-ROCHE-3285459

PATIENT
  Age: 57 Year
  Sex: Female
  Weight: 70.0 kg

DRUGS (1)
  1. ALECENSA [Suspect]
     Active Substance: ALECTINIB HYDROCHLORIDE
     Indication: Lung neoplasm malignant
     Dosage: FORM OF ADMINISTRATION 150MG*224CAPSULES,
     Route: 048
     Dates: start: 20210802

REACTIONS (6)
  - Oedema peripheral [Recovering/Resolving]
  - Constipation [Recovering/Resolving]
  - Muscular weakness [Not Recovered/Not Resolved]
  - Rectal tenesmus [Not Recovered/Not Resolved]
  - Faeces hard [Recovering/Resolving]
  - Diarrhoea [Recovering/Resolving]

NARRATIVE: CASE EVENT DATE: 20210901
